FAERS Safety Report 22535592 (Version 1)
Quarter: 2023Q2

REPORT INFORMATION
  Report Type: Spontaneous
  Country: US (occurrence: US)
  Receive Date: 20230608
  Receipt Date: 20230608
  Transmission Date: 20230721
  Serious: No
  Sender: FDA-Public Use
  Company Number: US-BAYER-2023A076250

PATIENT
  Age: 71 Year
  Sex: Female

DRUGS (10)
  1. CLARITIN [Suspect]
     Active Substance: LORATADINE
  2. MATZIM LA [Concomitant]
     Active Substance: DILTIAZEM HYDROCHLORIDE
  3. CLONIDINE [Concomitant]
     Active Substance: CLONIDINE
  4. SOMA [Concomitant]
     Active Substance: CARISOPRODOL
  5. DALIRESP [Concomitant]
     Active Substance: ROFLUMILAST
  6. EDECRINE [Concomitant]
  7. KLOR-CON M10 [Concomitant]
     Active Substance: POTASSIUM CHLORIDE
  8. SINGULAIR [Concomitant]
     Active Substance: MONTELUKAST SODIUM
  9. SPIRIVA [Concomitant]
     Active Substance: TIOTROPIUM BROMIDE MONOHYDRATE
  10. XYZAL [Concomitant]
     Active Substance: LEVOCETIRIZINE DIHYDROCHLORIDE

REACTIONS (1)
  - Asthma [Unknown]
